FAERS Safety Report 10032801 (Version 3)
Quarter: 2014Q2

REPORT INFORMATION
  Report Type: Spontaneous
  Country: ES (occurrence: ES)
  Receive Date: 20140324
  Receipt Date: 20140403
  Transmission Date: 20141212
  Serious: Yes (Hospitalization, Other)
  Sender: FDA-Public Use
  Company Number: ES-VERTEX PHARMACEUTICALS INC-2014-001448

PATIENT
  Age: 56 Year
  Sex: Female

DRUGS (3)
  1. INCIVO [Suspect]
     Indication: HEPATITIS C
     Dosage: 3-0-3
     Route: 048
     Dates: start: 20140116, end: 20140317
  2. RIBAVIRIN [Suspect]
     Indication: HEPATITIS C
     Dosage: 3-0-2
     Route: 065
     Dates: start: 20140116, end: 20140317
  3. PEGASYS [Suspect]
     Indication: HEPATITIS C
     Dosage: 180 ?G, QW
     Route: 065
     Dates: start: 20140116, end: 20140317

REACTIONS (3)
  - Pneumonia [Recovered/Resolved]
  - Platelet count decreased [Recovered/Resolved]
  - Anaemia [Recovering/Resolving]
